FAERS Safety Report 4935173-5 (Version None)
Quarter: 2006Q1

REPORT INFORMATION
  Report Type: 
  Country: None (occurrence: None)
  Receive Date: 20060303
  Receipt Date: 20060303
  Transmission Date: 20060701
  Serious: Yes (Other)
  Sender: FDA-Public Use
  Company Number: None

PATIENT
  Age: 79 Year
  Sex: Male
  Weight: 74.1178 kg

DRUGS (18)
  1. LUNESTA [Suspect]
     Indication: INSOMNIA
     Dosage: PO QHS - 3MG
     Route: 048
     Dates: start: 20060104, end: 20060223
  2. LEVAQUIN [Concomitant]
  3. NORVASC [Concomitant]
  4. COZAAR [Concomitant]
  5. ZOCOR [Concomitant]
  6. PLAVIX [Concomitant]
  7. REQUIP [Concomitant]
  8. COMBIVENT [Concomitant]
  9. PAXIL [Concomitant]
  10. VIT C, B12, B6, FOLATE [Concomitant]
  11. NASACORT AQ [Concomitant]
  12. M.V.I. [Concomitant]
  13. METAMUCIL [Concomitant]
  14. SAW PALMETTO [Concomitant]
  15. CALTRATE [Concomitant]
  16. ASPIRIN [Concomitant]
  17. ROBITUSSIN AC [Concomitant]
  18. TYLENOL (CAPLET) [Concomitant]

REACTIONS (6)
  - ASTHENIA [None]
  - DIZZINESS [None]
  - MIDDLE INSOMNIA [None]
  - MOVEMENT DISORDER [None]
  - NAUSEA [None]
  - PNEUMONITIS [None]
